FAERS Safety Report 11812682 (Version 4)
Quarter: 2015Q4

REPORT INFORMATION
  Report Type: Spontaneous
  Country: ES (occurrence: ES)
  Receive Date: 20151208
  Receipt Date: 20151231
  Transmission Date: 20160305
  Serious: Yes (Life-Threatening, Hospitalization, Other)
  Sender: FDA-Public Use
  Company Number: ES-ROCHE-1673910

PATIENT
  Age: 16 Year
  Sex: Male
  Weight: 56 kg

DRUGS (3)
  1. XOLAIR [Suspect]
     Active Substance: OMALIZUMAB
     Indication: ASTHMA
     Route: 058
     Dates: start: 200904
  2. XOLAIR [Suspect]
     Active Substance: OMALIZUMAB
     Route: 058
     Dates: start: 201509
  3. XOLAIR [Suspect]
     Active Substance: OMALIZUMAB
     Route: 058
     Dates: start: 20151204

REACTIONS (11)
  - Rales [Recovered/Resolved]
  - Weight increased [Recovered/Resolved]
  - Respiratory distress [Unknown]
  - Wheezing [Recovered/Resolved]
  - Conjunctivitis [Recovered/Resolved]
  - Hypersensitivity [Recovered/Resolved]
  - Asthmatic crisis [Recovered/Resolved]
  - Anaphylactic reaction [Recovered/Resolved]
  - Hypoventilation [Recovered/Resolved]
  - Rhinitis [Recovered/Resolved]
  - Tachypnoea [Recovered/Resolved]
